FAERS Safety Report 15638797 (Version 1)
Quarter: 2018Q4

REPORT INFORMATION
  Report Type: Spontaneous
  Country: US (occurrence: US)
  Receive Date: 20181120
  Receipt Date: 20181120
  Transmission Date: 20190205
  Serious: No
  Sender: FDA-Public Use
  Company Number: US-PERRIGO-18US004590

PATIENT
  Age: 85 Year
  Sex: Female

DRUGS (1)
  1. POLYETHYLENE GLYCOL 3350. [Suspect]
     Active Substance: POLYETHYLENE GLYCOL 3350
     Indication: CONSTIPATION
     Dosage: UNKNOWN, NIGHTLY
     Route: 048
     Dates: start: 201804

REACTIONS (4)
  - Hypersensitivity [Unknown]
  - Abdominal discomfort [Unknown]
  - Drug effect variable [Unknown]
  - Abdominal pain [Unknown]

NARRATIVE: CASE EVENT DATE: 201804
